FAERS Safety Report 16547410 (Version 2)
Quarter: 2020Q3

REPORT INFORMATION
  Report Type: Spontaneous
  Country: US (occurrence: US)
  Receive Date: 20190709
  Receipt Date: 20200709
  Transmission Date: 20201102
  Serious: No
  Sender: FDA-Public Use
  Company Number: US-ASTELLAS-2019US023658

PATIENT
  Age: 68 Year
  Sex: Male

DRUGS (2)
  1. MYRBETRIQ [Suspect]
     Active Substance: MIRABEGRON
     Indication: URINARY RETENTION
     Route: 048
     Dates: start: 201905
  2. MYRBETRIQ [Suspect]
     Active Substance: MIRABEGRON
     Indication: PYURIA

REACTIONS (2)
  - Dysuria [Not Recovered/Not Resolved]
  - Product use in unapproved indication [Unknown]
